FAERS Safety Report 15101271 (Version 1)
Quarter: 2018Q3

REPORT INFORMATION
  Report Type: Spontaneous
  Country: CA (occurrence: CA)
  Receive Date: 20180703
  Receipt Date: 20180703
  Transmission Date: 20181010
  Serious: Yes (Hospitalization)
  Sender: FDA-Public Use
  Company Number: CA-TEVA-2018-CA-919487

PATIENT
  Age: 19 Year
  Sex: Female
  Weight: 52.21 kg

DRUGS (1)
  1. COPAXONE [Suspect]
     Active Substance: GLATIRAMER ACETATE
     Indication: MULTIPLE SCLEROSIS
     Route: 058

REACTIONS (4)
  - Hypoaesthesia [Unknown]
  - Multiple sclerosis [Unknown]
  - Paraesthesia [Unknown]
  - Sensory loss [Unknown]
